FAERS Safety Report 6481322-X (Version None)
Quarter: 2009Q4

REPORT INFORMATION
  Report Type: 
  Country: None (occurrence: None)
  Receive Date: 20091208
  Receipt Date: 20091201
  Transmission Date: 20100525
  Serious: Yes (Hospitalization)
  Sender: FDA-Public Use
  Company Number: A0833972A

PATIENT
  Age: 48 Year
  Sex: Male

DRUGS (1)
  1. AVANDIA [Suspect]
     Indication: TYPE 2 DIABETES MELLITUS
     Route: 048
     Dates: start: 20000101, end: 20051001

REACTIONS (6)
  - ANHEDONIA [None]
  - ARRHYTHMIA [None]
  - CARDIAC DISORDER [None]
  - ECONOMIC PROBLEM [None]
  - GENERAL PHYSICAL HEALTH DETERIORATION [None]
  - MULTIPLE INJURIES [None]
